FAERS Safety Report 4263270-9 (Version None)
Quarter: 2004Q1

REPORT INFORMATION
  Report Type: 
  Country: None (occurrence: None)
  Receive Date: 20040105
  Receipt Date: 20031212
  Transmission Date: 20041129
  Serious: Yes (Hospitalization)
  Sender: FDA-Public Use
  Company Number: JP-GLAXOSMITHKLINE-B0317721A

PATIENT
  Age: 28 Year
  Sex: Male

DRUGS (4)
  1. ZIDOVUDINE [Suspect]
     Dosage: 300MG PER DAY
  2. RITONAVIR [Suspect]
     Indication: HIV INFECTION
     Dosage: 400MG PER DAY
     Route: 048
     Dates: start: 20000502
  3. INDINAVIR [Suspect]
     Indication: HIV INFECTION
     Dosage: 800MG PER DAY
     Route: 048
     Dates: start: 20000502
  4. DIDANOSINE [Concomitant]
     Indication: HIV INFECTION
     Dosage: 107MG PER DAY
     Route: 048
     Dates: start: 19970107

REACTIONS (1)
  - POST PROCEDURAL HAEMORRHAGE [None]
